FAERS Safety Report 9026364 (Version 1)
Quarter: 2012Q4

REPORT INFORMATION
  Report Type: Spontaneous
  Country: US (occurrence: None)
  Receive Date: 20121214
  Receipt Date: 20121214
  Transmission Date: 20130627
  Serious: Yes (Hospitalization)
  Sender: FDA-Public Use
  Company Number: None

PATIENT
  Age: 61 Year
  Sex: Female
  Weight: 97.3 kg

DRUGS (12)
  1. DECITABINE [Suspect]
     Indication: MDS
     Route: 058
  2. CIPRO [Concomitant]
  3. XANAX [Concomitant]
  4. NORVASC [Concomitant]
  5. ZOLPIDEM [Concomitant]
  6. HYDROMORPHONE [Concomitant]
  7. COLACE [Concomitant]
  8. PRILOSEC [Concomitant]
  9. ACYCLOVIR [Concomitant]
  10. ZOLOFT [Concomitant]
  11. ULTRAM [Concomitant]
  12. ZYRTEC [Concomitant]

REACTIONS (5)
  - Neutropenia [None]
  - Infection [None]
  - Pyrexia [None]
  - Fatigue [None]
  - Asthenia [None]
